FAERS Safety Report 20403370 (Version 1)
Quarter: 2022Q1

REPORT INFORMATION
  Report Type: Spontaneous
  Country: US (occurrence: None)
  Receive Date: 20220131
  Receipt Date: 20220131
  Transmission Date: 20220423
  Serious: No
  Sender: FDA-Public Use
  Company Number: 2022A015703

PATIENT
  Age: 881 Month
  Sex: Female
  Weight: 40.8 kg

DRUGS (2)
  1. BEVESPI AEROSPHERE [Suspect]
     Active Substance: FORMOTEROL FUMARATE\GLYCOPYRROLATE
     Indication: Chronic obstructive pulmonary disease
     Dosage: TWO TIMES A DAY
     Route: 055
     Dates: start: 202101, end: 202110
  2. BUDESONIDE\FORMOTEROL\GLYCOPYRRONIUM [Suspect]
     Active Substance: BUDESONIDE\FORMOTEROL\GLYCOPYRRONIUM
     Indication: Chronic obstructive pulmonary disease
     Dosage: TWICE A WEEK
     Route: 055
     Dates: start: 202112

REACTIONS (4)
  - Dysphonia [Not Recovered/Not Resolved]
  - Product dose omission issue [Recovered/Resolved]
  - Drug ineffective [Recovered/Resolved]
  - Manufacturing product shipping issue [Unknown]

NARRATIVE: CASE EVENT DATE: 20210101
